FAERS Safety Report 5444879-3 (Version None)
Quarter: 2007Q3

REPORT INFORMATION
  Report Type: 
  Country: None (occurrence: None)
  Receive Date: 20070904
  Receipt Date: 20070904
  Transmission Date: 20080115
  Serious: No
  Sender: FDA-Public Use
  Company Number: None

PATIENT
  Age: 51 Year
  Sex: Male
  Weight: 90.7194 kg

DRUGS (1)
  1. OLANZAPINE [Suspect]
     Dosage: 10 MG  HS  PO
     Route: 048

REACTIONS (1)
  - WEIGHT INCREASED [None]
